FAERS Safety Report 4383985-1 (Version None)
Quarter: 2004Q2

REPORT INFORMATION
  Report Type: 
  Country: None (occurrence: None)
  Receive Date: 20040621
  Receipt Date: 20040122
  Transmission Date: 20050107
  Serious: Yes (Hospitalization)
  Sender: FDA-Public Use
  Company Number: ALMO2004005

PATIENT
  Age: 24 Year
  Sex: Female
  Weight: 60 kg

DRUGS (1)
  1. ALMOGRAN [Suspect]
     Indication: MIGRAINE
     Dosage: 12.5 MG DAILY PO
     Route: 048
     Dates: start: 20031216, end: 20031217

REACTIONS (1)
  - BREAST PAIN [None]
